FAERS Safety Report 7740741-1 (Version None)
Quarter: 2011Q3

REPORT INFORMATION
  Report Type: 
  Country: None (occurrence: None)
  Receive Date: 20110909
  Receipt Date: 20110907
  Transmission Date: 20111222
  Serious: No
  Sender: FDA-Public Use
  Company Number: US-TEVA-299675USA

PATIENT
  Sex: Female
  Weight: 74.456 kg

DRUGS (4)
  1. ALPRAZOLAM [Concomitant]
  2. PROAIR HFA [Suspect]
     Indication: ASTHMA
     Route: 055
  3. LEVOTHYROXINE SODIUM [Concomitant]
  4. BECLOMETHASONE DIPROPIONATE [Concomitant]

REACTIONS (2)
  - COUGH [None]
  - DRUG INEFFECTIVE [None]
